FAERS Safety Report 9500767 (Version 1)
Quarter: 2013Q3

REPORT INFORMATION
  Report Type: Spontaneous
  Country: US (occurrence: US)
  Receive Date: 20130905
  Receipt Date: 20130905
  Transmission Date: 20140515
  Serious: Yes (Hospitalization, Other)
  Sender: FDA-Public Use
  Company Number: US-ELI_LILLY_AND_COMPANY-US201308009540

PATIENT
  Age: 74 Year
  Sex: Male

DRUGS (2)
  1. HUMALOG LISPRO [Suspect]
     Dosage: 10 U, TID
     Dates: start: 20130728
  2. LANTUS [Concomitant]
     Dosage: 35 U, BID

REACTIONS (3)
  - Brain neoplasm [Not Recovered/Not Resolved]
  - Blood glucose increased [Unknown]
  - Incorrect product storage [Unknown]
